FAERS Safety Report 8416575-1 (Version None)
Quarter: 2012Q2

REPORT INFORMATION
  Report Type: 
  Country: None (occurrence: None)
  Receive Date: 20120606
  Receipt Date: 20120528
  Transmission Date: 20120825
  Serious: Yes (Hospitalization)
  Sender: FDA-Public Use
  Company Number: IT-FRI-1000030977

PATIENT
  Sex: Female

DRUGS (7)
  1. NEBIVOLOL HCL [Concomitant]
     Route: 048
  2. LORAZEPAM [Concomitant]
     Route: 048
  3. PERINDOPRIL DOC [Concomitant]
     Route: 048
  4. AMITRIPTYLINE HCL [Concomitant]
     Route: 048
  5. DIFOSFONAL [Concomitant]
     Route: 030
  6. FOSFOMYCIN [Suspect]
     Indication: URINARY TRACT INFECTION
     Dosage: 1 DF
     Route: 048
     Dates: start: 20120511, end: 20120514
  7. LANSOPRAZOLO [Concomitant]
     Route: 048

REACTIONS (3)
  - DRUG HYPERSENSITIVITY [None]
  - OFF LABEL USE [None]
  - WHITE BLOOD CELL COUNT INCREASED [None]
